FAERS Safety Report 5526122-X (Version None)
Quarter: 2007Q4

REPORT INFORMATION
  Report Type: 
  Country: None (occurrence: None)
  Receive Date: 20071120
  Receipt Date: 20071105
  Transmission Date: 20080405
  Serious: Yes (Other)
  Sender: FDA-Public Use
  Company Number: AU-GDP-07403170

PATIENT
  Age: 53 Year
  Sex: Male

DRUGS (4)
  1. METVIXIA [Suspect]
     Indication: ACTINIC KERATOSIS
     Dosage: 2 G TOTAL TOPICAL
     Route: 061
     Dates: start: 20071101, end: 20071101
  2. ANAPROX [Concomitant]
  3. CELESTONE (BETAMETHASONE) [Concomitant]
  4. DIPROSONE [Concomitant]

REACTIONS (2)
  - CORNEAL EROSION [None]
  - OCULAR HYPERAEMIA [None]
